FAERS Safety Report 4290448-0 (Version None)
Quarter: 2004Q1

REPORT INFORMATION
  Report Type: 
  Country: None (occurrence: None)
  Receive Date: 20040210
  Receipt Date: 20040204
  Transmission Date: 20041129
  Serious: Yes (Hospitalization)
  Sender: FDA-Public Use
  Company Number: WAES 0402USA00445

PATIENT
  Sex: Male

DRUGS (1)
  1. COZAAR [Suspect]
     Route: 048
     Dates: start: 20020101

REACTIONS (3)
  - ADVERSE EVENT [None]
  - NAUSEA [None]
  - VOMITING [None]
